FAERS Safety Report 13980916 (Version 1)
Quarter: 2017Q3

REPORT INFORMATION
  Report Type: Spontaneous
  Country: US (occurrence: US)
  Receive Date: 20170918
  Receipt Date: 20170918
  Transmission Date: 20171128
  Serious: No
  Sender: FDA-Public Use
  Company Number: US-TEVA-678627USA

PATIENT
  Age: 73 Year
  Sex: Female

DRUGS (1)
  1. FEXOFENADINE [Suspect]
     Active Substance: FEXOFENADINE\FEXOFENADINE HYDROCHLORIDE
     Indication: DIZZINESS
     Dosage: 180 MILLIGRAM DAILY;
     Route: 048
     Dates: start: 20160713, end: 20160713

REACTIONS (3)
  - Drug administered to patient of inappropriate age [Unknown]
  - Off label use [Unknown]
  - Foreign body [Unknown]

NARRATIVE: CASE EVENT DATE: 20160713
